FAERS Safety Report 19314427 (Version 1)
Quarter: 2021Q2

REPORT INFORMATION
  Report Type: Spontaneous
  Country: US (occurrence: US)
  Receive Date: 20210527
  Receipt Date: 20210527
  Transmission Date: 20210717
  Serious: Yes (Hospitalization)
  Sender: FDA-Public Use
  Company Number: US-GLAXOSMITHKLINE-US2021106483

PATIENT
  Sex: Male

DRUGS (1)
  1. TRELEGY ELLIPTA [Suspect]
     Active Substance: FLUTICASONE FUROATE\UMECLIDINIUM BROMIDE\VILANTEROL TRIFENATATE
     Indication: CHRONIC OBSTRUCTIVE PULMONARY DISEASE
     Dosage: 1 PUFF(S), QD, (100/62.5/25 MCG)
     Route: 055
     Dates: start: 201901

REACTIONS (5)
  - Cardiac disorder [Unknown]
  - Heart rate decreased [Unknown]
  - Gait disturbance [Not Recovered/Not Resolved]
  - Hypertension [Unknown]
  - Dyspnoea [Not Recovered/Not Resolved]
